FAERS Safety Report 14173211 (Version 1)
Quarter: 2017Q4

REPORT INFORMATION
  Report Type: Spontaneous
  Country: US (occurrence: None)
  Receive Date: 20171109
  Receipt Date: 20171109
  Transmission Date: 20180321
  Serious: No
  Sender: FDA-Public Use
  Company Number: None

PATIENT
  Age: 70 Year
  Sex: Female
  Weight: 60.78 kg

DRUGS (13)
  1. SELENIUM [Concomitant]
     Active Substance: SELENIUM
  2. LOSARTAN. [Suspect]
     Active Substance: LOSARTAN
     Indication: HYPERTENSION
     Route: 048
     Dates: start: 20171013, end: 20171019
  3. VITAMIN K2 [Concomitant]
     Active Substance: MENAQUINONE 6
  4. VALSARTAN. [Concomitant]
     Active Substance: VALSARTAN
  5. DIAZEPAM. [Concomitant]
     Active Substance: DIAZEPAM
  6. ATORVASTATIN [Concomitant]
     Active Substance: ATORVASTATIN
  7. CALCIUM [Concomitant]
     Active Substance: CALCIUM
  8. COENZYME Q10 [Concomitant]
     Active Substance: UBIDECARENONE
  9. GLUCOSAMINE SULFATE [Concomitant]
     Active Substance: GLUCOSAMINE SULFATE
  10. POMEGRANATE JUICE [Concomitant]
     Active Substance: POMEGRANATE
  11. ASA [Concomitant]
     Active Substance: ASPIRIN
  12. HYDROCHLOROTHIAZIDE. [Concomitant]
     Active Substance: HYDROCHLOROTHIAZIDE
  13. VITAMIN D [Concomitant]
     Active Substance: CHOLECALCIFEROL

REACTIONS (6)
  - Intentional dose omission [None]
  - Blood pressure increased [None]
  - Swelling face [None]
  - Eye swelling [None]
  - Weight increased [None]
  - Product substitution issue [None]

NARRATIVE: CASE EVENT DATE: 20171013
